FAERS Safety Report 5580713-9 (Version None)
Quarter: 2008Q1

REPORT INFORMATION
  Report Type: 
  Country: None (occurrence: None)
  Receive Date: 20080103
  Receipt Date: 20071203
  Transmission Date: 20080703
  Serious: Yes (Other)
  Sender: FDA-Public Use
  Company Number: FR-PFIZER INC-2008000146

PATIENT
  Age: 2 Month
  Sex: Male

DRUGS (10)
  1. ZOLOFT [Suspect]
     Indication: DEPRESSION
     Route: 064
  2. NOZINAN [Suspect]
     Indication: DEPRESSION
     Route: 064
  3. MEPRONIZINE [Suspect]
     Indication: DEPRESSION
     Route: 064
  4. LEXOMIL [Suspect]
     Indication: DEPRESSION
     Route: 064
  5. SPECIAFOLDINE [Concomitant]
     Route: 064
     Dates: end: 20070706
  6. FUMAFER [Concomitant]
     Route: 064
     Dates: end: 20070706
  7. LEVOTHYROX [Concomitant]
     Route: 064
  8. MOPRAL [Concomitant]
     Route: 064
  9. LOXEN [Concomitant]
     Route: 064
  10. TRANDATE [Concomitant]
     Route: 064

REACTIONS (4)
  - AGITATION [None]
  - DRUG EXPOSURE DURING PREGNANCY [None]
  - DRUG WITHDRAWAL SYNDROME NEONATAL [None]
  - FEEDING DISORDER NEONATAL [None]
